FAERS Safety Report 13232311 (Version 3)
Quarter: 2017Q1

REPORT INFORMATION
  Report Type: Spontaneous
  Country: ES (occurrence: ES)
  Receive Date: 20170214
  Receipt Date: 20170303
  Transmission Date: 20170428
  Serious: Yes (Hospitalization)
  Sender: FDA-Public Use
  Company Number: ES-ELI_LILLY_AND_COMPANY-ES201702001628

PATIENT
  Age: 65 Year
  Sex: Male

DRUGS (12)
  1. TRULICITY [Suspect]
     Active Substance: DULAGLUTIDE
     Indication: TYPE 2 DIABETES MELLITUS
     Dosage: 1.5 MG, WEEKLY (1/W)
     Route: 030
     Dates: start: 20160912, end: 20161102
  2. ADIRO [Concomitant]
     Active Substance: ASPIRIN
     Dosage: UNK, UNKNOWN
     Route: 065
  3. ENALAPRIL [Concomitant]
     Active Substance: ENALAPRIL
     Dosage: 0.5 DF, EACH EVENING
     Route: 065
  4. SEGURIL [Concomitant]
     Active Substance: FUROSEMIDE
     Dosage: 1 DF, IN THE AFTERNOON
     Route: 065
  5. SINTROM [Concomitant]
     Active Substance: ACENOCOUMAROL
     Indication: ATRIAL FIBRILLATION
  6. VELMETIA [Concomitant]
     Active Substance: METFORMIN\SITAGLIPTIN
     Dosage: 1 DF, EACH EVENING
     Route: 065
  7. SINTROM [Concomitant]
     Active Substance: ACENOCOUMAROL
     Indication: ARRHYTHMIA
     Dosage: UNK, UNKNOWN
     Route: 065
  8. VELMETIA [Concomitant]
     Active Substance: METFORMIN\SITAGLIPTIN
     Dosage: 1 DF, EACH MORNING
     Route: 065
  9. ENALAPRIL [Concomitant]
     Active Substance: ENALAPRIL
     Dosage: 1 DF, EACH MORNING
     Route: 065
  10. ATORVA [Concomitant]
     Dosage: UNK, UNKNOWN
  11. SEGURIL [Concomitant]
     Active Substance: FUROSEMIDE
     Dosage: 2 DF, EACH MORNING
     Route: 065
  12. DIANBEN [Concomitant]
     Active Substance: METFORMIN HYDROCHLORIDE
     Dosage: 1 DF, IN THE AFTERNOON

REACTIONS (7)
  - Non-alcoholic steatohepatitis [Recovered/Resolved]
  - Asthenia [Unknown]
  - Hepatic encephalopathy [Unknown]
  - Weight increased [Unknown]
  - Incorrect route of drug administration [Unknown]
  - Confusional state [Unknown]
  - Anaemia [Unknown]

NARRATIVE: CASE EVENT DATE: 20161102
